FAERS Safety Report 7318349-1 (Version None)
Quarter: 2011Q1

REPORT INFORMATION
  Report Type: 
  Country: None (occurrence: None)
  Receive Date: 20110218
  Receipt Date: 20110218
  Transmission Date: 20110831
  Serious: Yes (Hospitalization)
  Sender: FDA-Public Use
  Company Number: None

PATIENT
  Age: 80 Year
  Sex: Female
  Weight: 81.4 kg

DRUGS (24)
  1. VIT C [Concomitant]
  2. LOPRESSOR [Concomitant]
  3. NYSTATIN [Concomitant]
  4. FERROUS SULFATE TAB [Concomitant]
  5. FLORASTOR [Concomitant]
  6. DUONEB [Concomitant]
  7. FLUTICASONE [Concomitant]
  8. FUROSEMIDE [Concomitant]
  9. INSULIN GLARGINE [Concomitant]
  10. IPRATROPIUM BROMIDE [Concomitant]
  11. MAG OX [Concomitant]
  12. POTASSIUM CHLORIDE [Concomitant]
  13. SIMVASTATIN [Concomitant]
  14. LEVOTHYROXINE [Concomitant]
  15. SPIRONOLACTONE [Concomitant]
  16. TYLENOL [Concomitant]
  17. ZINC SULFATE [Concomitant]
  18. LISINOPRIL [Concomitant]
  19. COUMADIN [Suspect]
     Indication: CORONARY ARTERY DISEASE
     Dosage: CHRONIC
  20. LIDODERM [Concomitant]
  21. SERTRALINE [Concomitant]
  22. ALBUTEROL [Concomitant]
  23. M.V.I. [Concomitant]
  24. PHENERGAN [Concomitant]

REACTIONS (4)
  - UTERINE POLYP [None]
  - UTERINE DILATION AND CURETTAGE [None]
  - VAGINAL HAEMORRHAGE [None]
  - ENDOMETRIAL HYPERTROPHY [None]
